FAERS Safety Report 7162767-1 (Version None)
Quarter: 2010Q4

REPORT INFORMATION
  Report Type: 
  Country: None (occurrence: None)
  Receive Date: 20101215
  Receipt Date: 20091215
  Transmission Date: 20110411
  Serious: Yes (Other)
  Sender: FDA-Public Use
  Company Number: US-PFIZER INC-2009311065

PATIENT
  Sex: Female

DRUGS (2)
  1. LYRICA [Suspect]
     Indication: DIABETIC NEUROPATHY
     Dosage: 50 MG, 1X/DAY
  2. LYRICA [Suspect]
     Indication: NEURALGIA

REACTIONS (3)
  - DYSURIA [None]
  - FLUID RETENTION [None]
  - MYOCARDIAL INFARCTION [None]
